FAERS Safety Report 19086523 (Version 2)
Quarter: 2021Q2

REPORT INFORMATION
  Report Type: Spontaneous
  Country: IT (occurrence: IT)
  Receive Date: 20210402
  Receipt Date: 20210419
  Transmission Date: 20210717
  Serious: Yes (Hospitalization, Other)
  Sender: FDA-Public Use
  Company Number: IT-MACLEODS PHARMACEUTICALS US LTD-MAC2021030632

PATIENT

DRUGS (2)
  1. CEFTRIAXONE. [Concomitant]
     Active Substance: CEFTRIAXONE
     Indication: H1N1 INFLUENZA
     Dosage: UNK
     Route: 042
     Dates: start: 201902
  2. OSELTAMIVIR [Suspect]
     Active Substance: OSELTAMIVIR
     Indication: H1N1 INFLUENZA
     Dosage: UNK
     Route: 048
     Dates: start: 201902, end: 201902

REACTIONS (4)
  - Hyponatraemia [Unknown]
  - Hepatitis cholestatic [Recovered/Resolved]
  - Drug-induced liver injury [Recovering/Resolving]
  - Thrombocytopenia [Unknown]

NARRATIVE: CASE EVENT DATE: 201902
